FAERS Safety Report 4988548-2 (Version None)
Quarter: 2006Q2

REPORT INFORMATION
  Report Type: 
  Country: None (occurrence: None)
  Receive Date: 20060502
  Receipt Date: 20051220
  Transmission Date: 20061013
  Serious: Yes (Hospitalization)
  Sender: FDA-Public Use
  Company Number: FR-GLAXOSMITHKLINE-B0404306A

PATIENT
  Age: 44 Year
  Sex: Male
  Weight: 56 kg

DRUGS (6)
  1. ZEFFIX [Suspect]
     Indication: HEPATITIS B
     Route: 048
     Dates: end: 20010417
  2. COMBIVIR [Suspect]
     Indication: HIV INFECTION
     Route: 048
  3. SUSTIVA [Suspect]
     Indication: HIV INFECTION
     Route: 048
  4. INTRON A [Suspect]
     Route: 065
  5. DAPSONE [Suspect]
     Route: 065
     Dates: end: 20010420
  6. ALDACTONE [Concomitant]
     Route: 048

REACTIONS (9)
  - ALANINE AMINOTRANSFERASE INCREASED [None]
  - ASPARTATE AMINOTRANSFERASE INCREASED [None]
  - BLOOD BILIRUBIN INCREASED [None]
  - HEPATIC CIRRHOSIS [None]
  - LIPASE INCREASED [None]
  - LOBAR PNEUMONIA [None]
  - PANCREATIC ENZYMES INCREASED [None]
  - PANCREATITIS [None]
  - RENAL FAILURE [None]
